FAERS Safety Report 11879274 (Version 1)
Quarter: 2015Q4

REPORT INFORMATION
  Report Type: Spontaneous
  Country: US (occurrence: US)
  Receive Date: 20151230
  Receipt Date: 20151230
  Transmission Date: 20160305
  Serious: Yes (Other)
  Sender: FDA-Public Use
  Company Number: US-BAYER-2015-497499

PATIENT
  Age: 55 Year
  Sex: Female

DRUGS (1)
  1. GADAVIST [Suspect]
     Active Substance: GADOBUTROL
     Dosage: 5.5 ML, ONCE
     Dates: start: 20151223, end: 20151223

REACTIONS (2)
  - Urticaria [None]
  - Eyelid oedema [None]

NARRATIVE: CASE EVENT DATE: 20151223
